FAERS Safety Report 6869292-3 (Version None)
Quarter: 2010Q3

REPORT INFORMATION
  Report Type: 
  Country: None (occurrence: None)
  Receive Date: 20100722
  Receipt Date: 20080717
  Transmission Date: 20110219
  Serious: No
  Sender: FDA-Public Use
  Company Number: US-PFIZER INC-2008061105

PATIENT
  Sex: Female
  Weight: 79.5 kg

DRUGS (12)
  1. CHANTIX [Suspect]
     Indication: SMOKING CESSATION THERAPY
     Dates: start: 20080701
  2. METFORMIN [Concomitant]
  3. AVANDIA [Concomitant]
  4. ALL OTHER THERAPEUTIC PRODUCTS [Concomitant]
  5. NOVOLOG [Concomitant]
  6. ZOCOR [Concomitant]
  7. LISINOPRIL [Concomitant]
  8. AMITRIPTYLINE HYDROCHLORIDE [Concomitant]
  9. ROBAXIN [Concomitant]
  10. NAPROXEN [Concomitant]
  11. ULTRAM [Concomitant]
  12. VICODIN [Concomitant]

REACTIONS (2)
  - ANXIETY [None]
  - IRRITABILITY [None]
